FAERS Safety Report 24803344 (Version 1)
Quarter: 2025Q1

REPORT INFORMATION
  Report Type: Spontaneous
  Country: JP (occurrence: JP)
  Receive Date: 20250103
  Receipt Date: 20250103
  Transmission Date: 20250409
  Serious: No
  Sender: ALKEM
  Company Number: None

PATIENT
  Age: 6 Decade
  Sex: Male
  Weight: 58 kg

DRUGS (12)
  1. TACROLIMUS [Interacting]
     Active Substance: TACROLIMUS
     Indication: Immunosuppressant drug therapy
     Route: 065
  2. TACROLIMUS [Interacting]
     Active Substance: TACROLIMUS
     Route: 065
  3. TACROLIMUS [Interacting]
     Active Substance: TACROLIMUS
     Route: 065
  4. TACROLIMUS [Interacting]
     Active Substance: TACROLIMUS
     Route: 065
  5. AZATHIOPRINE [Interacting]
     Active Substance: AZATHIOPRINE
     Indication: Immunosuppressant drug therapy
     Dosage: 50 MILLIGRAM, QD (INTERNAL USE)
     Route: 065
  6. ENSITRELVIR [Interacting]
     Active Substance: ENSITRELVIR
     Indication: COVID-19
     Dosage: 375 MILLIGRAM, QD (INTERNAL USE)
     Route: 065
  7. ENSITRELVIR [Interacting]
     Active Substance: ENSITRELVIR
     Dosage: 125 MILLIGRAM (DAYS 2 TO 5) (INTERNAL USE)
     Route: 065
  8. PREDNISOLONE [Concomitant]
     Active Substance: PREDNISOLONE
     Indication: Immunosuppressant drug therapy
     Route: 065
  9. ATORVASTATIN [Concomitant]
     Active Substance: ATORVASTATIN
     Indication: Product used for unknown indication
     Dosage: 5 MILLIGRAM, QD
     Route: 065
  10. AMBROXOL [Concomitant]
     Active Substance: AMBROXOL
     Indication: Product used for unknown indication
     Dosage: 45 MILLIGRAM, QD
     Route: 065
  11. BENZBROMARONE [Concomitant]
     Active Substance: BENZBROMARONE
     Indication: Product used for unknown indication
     Dosage: 12.5 MILLIGRAM, QD
     Route: 065
  12. DIETARY SUPPLEMENT\PROBIOTICS [Concomitant]
     Active Substance: DIETARY SUPPLEMENT\PROBIOTICS NOS
     Indication: Product used for unknown indication
     Route: 065

REACTIONS (3)
  - Immunosuppressant drug level increased [Recovered/Resolved]
  - Drug interaction [Unknown]
  - COVID-19 [Recovered/Resolved]
